FAERS Safety Report 6155815-9 (Version None)
Quarter: 2009Q2

REPORT INFORMATION
  Report Type: 
  Country: None (occurrence: None)
  Receive Date: 20090415
  Receipt Date: 20090403
  Transmission Date: 20091009
  Serious: Yes (Hospitalization)
  Sender: FDA-Public Use
  Company Number: JP-PFIZER INC-2009181599

PATIENT

DRUGS (3)
  1. AZITHROMYCIN [Suspect]
     Indication: UPPER RESPIRATORY TRACT INFECTION
     Dosage: FREQUENCY: 3X/DAY,
     Dates: start: 20090227, end: 20090228
  2. VOLTAREN [Concomitant]
     Dates: start: 20050101
  3. LOXONIN [Concomitant]
     Dates: start: 20050101

REACTIONS (2)
  - ENANTHEMA [None]
  - GENITAL ULCERATION [None]
